FAERS Safety Report 15474374 (Version 1)
Quarter: 2018Q4

REPORT INFORMATION
  Report Type: Spontaneous
  Country: GB (occurrence: GB)
  Receive Date: 20181008
  Receipt Date: 20181008
  Transmission Date: 20190205
  Serious: Yes (Hospitalization, Other)
  Sender: FDA-Public Use
  Company Number: GB-JNJFOC-20181003397

PATIENT
  Sex: Male

DRUGS (2)
  1. CARBAMAZEPIN [Interacting]
     Active Substance: CARBAMAZEPINE
     Indication: PRODUCT USED FOR UNKNOWN INDICATION
     Route: 065
  2. XARELTO [Suspect]
     Active Substance: RIVAROXABAN
     Indication: PULMONARY EMBOLISM
     Route: 048

REACTIONS (4)
  - Labelled drug-drug interaction medication error [Unknown]
  - Drug ineffective [Unknown]
  - Pulmonary embolism [Unknown]
  - Myocardial strain [Unknown]

NARRATIVE: CASE EVENT DATE: 20180315
